FAERS Safety Report 20612541 (Version 1)
Quarter: 2022Q1

REPORT INFORMATION
  Report Type: Spontaneous
  Country: US (occurrence: US)
  Receive Date: 20220318
  Receipt Date: 20220318
  Transmission Date: 20220424
  Serious: No
  Sender: FDA-Public Use
  Company Number: US-TEVA-2022-US-2010574

PATIENT

DRUGS (5)
  1. IRBESARTAN [Suspect]
     Active Substance: IRBESARTAN
     Route: 065
  2. GABAPENTIN [Suspect]
     Active Substance: GABAPENTIN
     Route: 065
  3. ATORVASTATIN [Suspect]
     Active Substance: ATORVASTATIN
     Route: 065
  4. AZITHROMYCIN [Suspect]
     Active Substance: AZITHROMYCIN
     Route: 065
  5. GLIPIZIDE [Suspect]
     Active Substance: GLIPIZIDE
     Route: 065

REACTIONS (1)
  - Drug hypersensitivity [Unknown]
